FAERS Safety Report 7337931-9 (Version None)
Quarter: 2011Q1

REPORT INFORMATION
  Report Type: 
  Country: None (occurrence: None)
  Receive Date: 20110308
  Receipt Date: 20110225
  Transmission Date: 20110831
  Serious: Yes (Death)
  Sender: FDA-Public Use
  Company Number: AU-BAXTER-2011BH004975

PATIENT

DRUGS (14)
  1. CYCLOPHOSPHAMIDE [Suspect]
     Indication: ACUTE LYMPHOCYTIC LEUKAEMIA
     Route: 065
  2. DOXORUBICIN HCL [Suspect]
     Indication: ACUTE LYMPHOCYTIC LEUKAEMIA
     Route: 065
  3. CYTARABINE [Suspect]
     Route: 037
  4. METHOTREXATE GENERIC [Suspect]
     Indication: ACUTE LYMPHOCYTIC LEUKAEMIA
     Route: 065
  5. METHOTREXATE GENERIC [Suspect]
     Route: 065
  6. CYTARABINE [Suspect]
     Indication: ACUTE LYMPHOCYTIC LEUKAEMIA
     Dosage: DOSE UNIT:GRAMS PER METERS SQUARED
     Route: 065
  7. METHOTREXATE GENERIC [Suspect]
     Route: 037
  8. FOLINIC ACID [Concomitant]
     Route: 042
  9. VALACICLOVIR [Concomitant]
     Indication: PROPHYLAXIS
     Route: 065
  10. VINCRISTINE SULFATE [Suspect]
     Indication: ACUTE LYMPHOCYTIC LEUKAEMIA
     Route: 065
  11. DEXAMETHASONE [Suspect]
     Indication: ACUTE LYMPHOCYTIC LEUKAEMIA
     Route: 065
  12. FOLINIC ACID [Concomitant]
     Indication: PROPHYLAXIS
     Route: 042
  13. SULFAMETHOXAZOLE AND TRIMETHOPRIM [Concomitant]
     Indication: PROPHYLAXIS
     Route: 065
  14. FLUCONAZOLE [Concomitant]
     Indication: PROPHYLAXIS
     Route: 065

REACTIONS (1)
  - PNEUMONIA CYTOMEGALOVIRAL [None]
